FAERS Safety Report 20702183 (Version 1)
Quarter: 2022Q2

REPORT INFORMATION
  Report Type: Spontaneous
  Country: JP (occurrence: JP)
  Receive Date: 20220412
  Receipt Date: 20220412
  Transmission Date: 20220720
  Serious: Yes (Death, Hospitalization)
  Sender: FDA-Public Use
  Company Number: JP-CHUGAI-2022003049

PATIENT
  Age: 66 Year
  Sex: Male

DRUGS (1)
  1. GAZYVA [Suspect]
     Active Substance: OBINUTUZUMAB
     Indication: Follicular lymphoma
     Dosage: 1,000 (UNIT UNKNOWN)
     Route: 041
     Dates: start: 20190528, end: 20191017

REACTIONS (2)
  - Disease progression [Fatal]
  - Sepsis [Fatal]

NARRATIVE: CASE EVENT DATE: 20201005
